FAERS Safety Report 5338793-1 (Version None)
Quarter: 2007Q2

REPORT INFORMATION
  Report Type: 
  Country: None (occurrence: None)
  Receive Date: 20070328
  Receipt Date: 20060705
  Transmission Date: 20071010
  Serious: Yes (Hospitalization)
  Sender: FDA-Public Use
  Company Number: K200600876

PATIENT
  Age: 70 Year
  Sex: Male
  Weight: 74.4 kg

DRUGS (1)
  1. ALTACE [Suspect]
     Indication: CARDIOVASCULAR EVENT PROPHYLAXIS
     Dosage: ORAL
     Route: 048
     Dates: start: 20060124, end: 20060203

REACTIONS (2)
  - COUGH [None]
  - VASCULITIS [None]
